FAERS Safety Report 5104923-X (Version None)
Quarter: 2006Q3

REPORT INFORMATION
  Report Type: 
  Country: None (occurrence: None)
  Receive Date: 20060911
  Receipt Date: 20060911
  Transmission Date: 20061208
  Serious: Yes (Hospitalization)
  Sender: FDA-Public Use
  Company Number: None

PATIENT
  Sex: Female
  Weight: 119.5 kg

DRUGS (3)
  1. CISPLATIN [Suspect]
     Dosage: 195 MG
  2. ERBITUX [Suspect]
     Dosage: 2250 MG
  3. CAMPTOSAR [Suspect]
     Dosage: 420 MG

REACTIONS (9)
  - ATELECTASIS [None]
  - CEREBROVASCULAR ACCIDENT [None]
  - CLUMSINESS [None]
  - HEADACHE [None]
  - HYPOTENSION [None]
  - HYPOXIA [None]
  - MUSCULAR WEAKNESS [None]
  - NUCLEAR MAGNETIC RESONANCE IMAGING BRAIN ABNORMAL [None]
  - TRANSIENT ISCHAEMIC ATTACK [None]
